FAERS Safety Report 5972789-1 (Version None)
Quarter: 2008Q4

REPORT INFORMATION
  Report Type: 
  Country: None (occurrence: None)
  Receive Date: 20081201
  Receipt Date: 20081124
  Transmission Date: 20090506
  Serious: Yes (Death)
  Sender: FDA-Public Use
  Company Number: GB-MERCK-0811GBR00045

PATIENT
  Age: 74 Year
  Sex: Male

DRUGS (8)
  1. ZOCOR [Suspect]
     Route: 048
  2. AMLODIPINE [Suspect]
     Route: 048
  3. ASPIRIN [Suspect]
     Route: 048
  4. IBUPROFEN [Suspect]
     Route: 048
  5. OMEPRAZOLE [Suspect]
     Route: 048
  6. PERINDOPRIL [Suspect]
     Route: 048
  7. AMOXICILLIN [Concomitant]
     Route: 065
  8. LEVOTHYROXINE SODIUM [Concomitant]
     Route: 065

REACTIONS (14)
  - ACUTE RESPIRATORY DISTRESS SYNDROME [None]
  - ALVEOLITIS [None]
  - ANOREXIA [None]
  - COUGH [None]
  - DERMATOMYOSITIS [None]
  - DRUG ERUPTION [None]
  - HAEMOPTYSIS [None]
  - LOWER RESPIRATORY TRACT INFECTION [None]
  - MUSCULAR WEAKNESS [None]
  - OROPHARYNGEAL PAIN [None]
  - RASH [None]
  - RENAL FAILURE ACUTE [None]
  - RESPIRATORY FAILURE [None]
  - WEIGHT DECREASED [None]
